FAERS Safety Report 9175905 (Version 1)
Quarter: 2013Q1

REPORT INFORMATION
  Report Type: Report from Study
  Country: GB (occurrence: GB)
  Receive Date: 20130320
  Receipt Date: 20130320
  Transmission Date: 20140127
  Serious: Yes (Disabling)
  Sender: FDA-Public Use
  Company Number: GB-009507513-1303GBR007640

PATIENT
  Age: 47 Year
  Sex: Male
  Weight: 63 kg

DRUGS (5)
  1. VORINOSTAT [Suspect]
     Indication: PLASMA CELL MYELOMA
     Dosage: 300 MG, DAY 1-7 AND 15-21
     Route: 048
     Dates: end: 20130110
  2. DEXAMETHASONE TABLETS BP  2.0MG [Suspect]
     Indication: PLASMA CELL MYELOMA
     Dosage: 20 MG, DAYS 1-4 AND 12-15
     Route: 048
     Dates: start: 20120321
  3. CYCLOPHOSPHAMIDE [Suspect]
     Indication: PLASMA CELL MYELOMA
     Dosage: 500 MG, DAYS 1, 8, 15
     Route: 048
     Dates: start: 20120321
  4. THALIDOMIDE [Suspect]
     Dosage: 100 MG, DAILY FOR 21 DAYS
     Route: 048
     Dates: start: 20120321
  5. LENALIDOMIDE [Suspect]
     Indication: PLASMA CELL MYELOMA
     Dosage: 10 MG, DAY 1-7 AND 15-21
     Route: 048
     Dates: end: 20130110

REACTIONS (1)
  - Nodule [Not Recovered/Not Resolved]
